FAERS Safety Report 9160275 (Version 1)
Quarter: 2013Q1

REPORT INFORMATION
  Report Type: Spontaneous
  Country: US (occurrence: None)
  Receive Date: 20130220
  Receipt Date: 20130220
  Transmission Date: 20140127
  Serious: Yes (Other)
  Sender: FDA-Public Use
  Company Number: US-1196574

PATIENT
  Age: 39 Year
  Sex: Female

DRUGS (4)
  1. BSS INTRAOCULAR SOLUTION (BSS) [Suspect]
     Indication: PHOTOREFRACTIVE KERATECTOMY
     Route: 031
     Dates: start: 20130201, end: 20130201
  2. BSS INTRAOCULAR SOLUTION (BSS) [Suspect]
     Indication: PHOTOREFRACTIVE KERATECTOMY
     Route: 031
     Dates: start: 20130201, end: 20130201
  3. TETRACAINE [Concomitant]
  4. PROPARACAINE [Concomitant]

REACTIONS (4)
  - Corneal oedema [None]
  - Corneal opacity [None]
  - Medication error [None]
  - Foreign body in eye [None]
